FAERS Safety Report 17263628 (Version 1)
Quarter: 2020Q1

REPORT INFORMATION
  Report Type: Spontaneous
  Country: US (occurrence: US)
  Receive Date: 20200113
  Receipt Date: 20200113
  Transmission Date: 20200409
  Serious: Yes (Hospitalization, Disabling)
  Sender: FDA-Public Use
  Company Number: None

PATIENT
  Age: 56 Year
  Sex: Female
  Weight: 59.85 kg

DRUGS (1)
  1. AIMOVIG [Suspect]
     Active Substance: ERENUMAB-AOOE
     Indication: MIGRAINE
     Dosage: ?          OTHER FREQUENCY:MONTHLY;OTHER ROUTE:INJECTION?
     Dates: start: 20181002, end: 20191223

REACTIONS (14)
  - Constipation [None]
  - Sinusitis [None]
  - Dizziness [None]
  - Chest discomfort [None]
  - Renal disorder [None]
  - Depression [None]
  - Pruritus [None]
  - Abdominal pain upper [None]
  - Anxiety [None]
  - Nausea [None]
  - Weight decreased [None]
  - Vision blurred [None]
  - Fatigue [None]
  - Bladder disorder [None]
